FAERS Safety Report 4709989-4 (Version None)
Quarter: 2005Q3

REPORT INFORMATION
  Report Type: 
  Country: None (occurrence: None)
  Receive Date: 20050708
  Receipt Date: 20050629
  Transmission Date: 20060218
  Serious: Yes (Other)
  Sender: FDA-Public Use
  Company Number: 200512195FR

PATIENT
  Age: 65 Year
  Sex: Female

DRUGS (2)
  1. TARGOCID [Suspect]
     Indication: STAPHYLOCOCCAL INFECTION
     Route: 042
     Dates: start: 20050618, end: 20050626
  2. RIFADIN [Suspect]
     Indication: STAPHYLOCOCCAL INFECTION
     Route: 048
     Dates: start: 20050618, end: 20050625

REACTIONS (2)
  - ANAPHYLACTIC SHOCK [None]
  - THROMBOCYTOPENIA [None]
